FAERS Safety Report 11465084 (Version 5)
Quarter: 2016Q1

REPORT INFORMATION
  Report Type: Report from Study
  Country: US (occurrence: US)
  Receive Date: 20150907
  Receipt Date: 20160201
  Transmission Date: 20160525
  Serious: Yes (Hospitalization, Other)
  Sender: FDA-Public Use
  Company Number: US-ALEXION-A201503334

PATIENT
  Age: 35 Year
  Sex: Female

DRUGS (1)
  1. SOLIRIS [Suspect]
     Active Substance: ECULIZUMAB
     Indication: HAEMOLYTIC URAEMIC SYNDROME
     Dosage: 1200 MG, Q2W
     Route: 042
     Dates: start: 2009

REACTIONS (21)
  - Cerebrovascular accident [Unknown]
  - Contusion [Unknown]
  - Abdominal discomfort [Not Recovered/Not Resolved]
  - Memory impairment [Unknown]
  - Gastrooesophageal reflux disease [Unknown]
  - Abdominal pain [Not Recovered/Not Resolved]
  - Visual impairment [Recovered/Resolved]
  - Hypoaesthesia [Recovered/Resolved]
  - Transient ischaemic attack [Unknown]
  - Blindness [Not Recovered/Not Resolved]
  - Dysarthria [Recovered/Resolved]
  - Platelet count increased [Unknown]
  - Irritable bowel syndrome [Unknown]
  - Dyspepsia [Unknown]
  - Migraine with aura [Not Recovered/Not Resolved]
  - Lactose intolerance [Unknown]
  - Migraine [Unknown]
  - Choking [Unknown]
  - Diarrhoea [Not Recovered/Not Resolved]
  - Renal failure [Unknown]
  - Hypoaesthesia [Recovered/Resolved]

NARRATIVE: CASE EVENT DATE: 2009
